FAERS Safety Report 16842431 (Version 1)
Quarter: 2019Q3

REPORT INFORMATION
  Report Type: Spontaneous
  Country: JP (occurrence: JP)
  Receive Date: 20190924
  Receipt Date: 20190924
  Transmission Date: 20191005
  Serious: Yes (Hospitalization, Other)
  Sender: FDA-Public Use
  Company Number: JP-PFIZER INC-2019403939

PATIENT
  Age: 80 Year
  Sex: Male

DRUGS (2)
  1. DEPAS [ETIZOLAM] [Suspect]
     Active Substance: ETIZOLAM
  2. LYRICA [Suspect]
     Active Substance: PREGABALIN

REACTIONS (2)
  - Respiratory depression [Recovering/Resolving]
  - Gait disturbance [Recovering/Resolving]
